FAERS Safety Report 13740890 (Version 1)
Quarter: 2017Q3

REPORT INFORMATION
  Report Type: Spontaneous
  Country: US (occurrence: US)
  Receive Date: 20170710
  Receipt Date: 20170710
  Transmission Date: 20171127
  Serious: Yes (Disabling)
  Sender: FDA-Public Use
  Company Number: None

PATIENT
  Age: 27 Year
  Sex: Male
  Weight: 50 kg

DRUGS (6)
  1. VEGETARIAN OMEGA-3 [Concomitant]
  2. OMEPRAZOL [Concomitant]
     Active Substance: OMEPRAZOLE
  3. DAILY MULTIVITAMIN [Concomitant]
     Active Substance: VITAMINS
  4. CONCERTA [Suspect]
     Active Substance: METHYLPHENIDATE HYDROCHLORIDE
     Indication: ATTENTION DEFICIT/HYPERACTIVITY DISORDER
     Dosage: ?          OTHER STRENGTH:MG;QUANTITY:1 CAPSULE(S);?
     Route: 048
     Dates: start: 20161118, end: 20170708
  5. DOXAZOSIN [Concomitant]
     Active Substance: DOXAZOSIN\DOXAZOSIN MESYLATE
  6. DOMPERIDONE [Concomitant]
     Active Substance: DOMPERIDONE

REACTIONS (3)
  - Prostatic specific antigen increased [None]
  - Dysuria [None]
  - Prostatitis [None]

NARRATIVE: CASE EVENT DATE: 20170707
